FAERS Safety Report 6305065-8 (Version None)
Quarter: 2009Q3

REPORT INFORMATION
  Report Type: 
  Country: None (occurrence: None)
  Receive Date: 20090811
  Receipt Date: 20090730
  Transmission Date: 20100115
  Serious: Yes (Other)
  Sender: FDA-Public Use
  Company Number: ES-PFIZER INC-2009247841

PATIENT
  Age: 75 Year

DRUGS (8)
  1. CHAMPIX [Suspect]
     Indication: TOBACCO ABUSE
     Dosage: 1 MG, 1X/DAY
     Route: 048
     Dates: start: 20090509, end: 20090516
  2. OMEPRAZOL [Concomitant]
     Dosage: 20 MG, 1X/DAY
     Route: 048
  3. METFORMIN [Concomitant]
     Indication: DIABETES MELLITUS
     Dosage: 425 MG, 1X/DAY
     Route: 048
  4. AMLODIPINE [Concomitant]
     Indication: HYPERTENSION
     Dosage: 5 MG, 1X/DAY
     Route: 048
  5. ADIRO [Concomitant]
     Dosage: 100 MG, 1X/DAY
  6. CARDURA [Concomitant]
     Indication: HYPERTENSION
     Dosage: 8 MG, 1X/DAY
     Route: 048
  7. CARDYL [Concomitant]
     Indication: DYSLIPIDAEMIA
     Dosage: 10 MG, 1X/DAY
     Route: 048
  8. COVERSYL [Concomitant]
     Indication: HYPERTENSION
     Dosage: 4 MG, 1X/DAY
     Route: 048

REACTIONS (1)
  - ILEUS PARALYTIC [None]
